FAERS Safety Report 21998887 (Version 1)
Quarter: 2023Q1

REPORT INFORMATION
  Report Type: Spontaneous
  Country: US (occurrence: None)
  Receive Date: 20230214
  Receipt Date: 20230214
  Transmission Date: 20230418
  Serious: Yes (Hospitalization)
  Sender: FDA-Public Use
  Company Number: None

PATIENT
  Sex: Male

DRUGS (1)
  1. ETOPOSIDE [Suspect]
     Active Substance: ETOPOSIDE
     Indication: Bronchial carcinoma
     Dosage: FREQUENCY : AS DIRECTED;?50MG, TAKE 10 CAPSULES DAILY ON DAY 1 AND DAY 2 OF EVERY 21;
     Route: 048
     Dates: start: 20230131

REACTIONS (2)
  - Pyrexia [None]
  - Confusional state [None]
